FAERS Safety Report 6955173-3 (Version None)
Quarter: 2010Q3

REPORT INFORMATION
  Report Type: 
  Country: None (occurrence: None)
  Receive Date: 20100830
  Receipt Date: 20100819
  Transmission Date: 20110219
  Serious: Yes (Hospitalization)
  Sender: FDA-Public Use
  Company Number: GB-SANOFI-AVENTIS-2010SA030398

PATIENT
  Age: 66 Year
  Sex: Male
  Weight: 82.7 kg

DRUGS (15)
  1. AFLIBERCEPT [Suspect]
     Indication: PROSTATE CANCER METASTATIC
     Route: 042
     Dates: start: 20091106, end: 20091106
  2. AFLIBERCEPT [Suspect]
     Route: 042
     Dates: start: 20100521, end: 20100521
  3. DOCETAXEL [Suspect]
     Indication: PROSTATE CANCER METASTATIC
     Route: 042
     Dates: start: 20091106, end: 20091106
  4. DOCETAXEL [Suspect]
     Route: 042
     Dates: start: 20100521, end: 20100521
  5. PREDNISOLONE [Suspect]
     Indication: PROSTATE CANCER METASTATIC
     Dates: start: 20091106, end: 20100521
  6. ZOLADEX [Concomitant]
     Dates: start: 20071022
  7. CIALIS [Concomitant]
     Dates: start: 20080101
  8. SELENIUM-ACE [Concomitant]
     Dates: start: 20091026
  9. CLEXANE [Concomitant]
     Dates: start: 20091001
  10. CALCIUM [Concomitant]
     Dates: start: 20091026
  11. GLUCOSAMINE [Concomitant]
     Dates: start: 20091026
  12. VITAMIN D [Concomitant]
     Dates: start: 20091026
  13. COD LIVER OIL [Concomitant]
     Dates: start: 20091026
  14. EVENING PRIMROSE OIL [Concomitant]
     Dates: start: 20091026
  15. OMEPRAZOLE [Concomitant]
     Dates: start: 20091223

REACTIONS (1)
  - PNEUMONIA NECROTISING [None]
